FAERS Safety Report 13430974 (Version 1)
Quarter: 2017Q2

REPORT INFORMATION
  Report Type: Spontaneous
  Country: US (occurrence: US)
  Receive Date: 20170411
  Receipt Date: 20170411
  Transmission Date: 20170830
  Serious: Yes (Other)
  Sender: FDA-Public Use
  Company Number: None

PATIENT
  Age: 80 Year
  Sex: Male
  Weight: 98.6 kg

DRUGS (1)
  1. ROCURONIUM BROMIDE. [Suspect]
     Active Substance: ROCURONIUM BROMIDE
     Indication: ANAPHYLACTIC REACTION
     Dates: start: 20120810, end: 20120810

REACTIONS (2)
  - Ventricular fibrillation [None]
  - Anaphylactic reaction [None]

NARRATIVE: CASE EVENT DATE: 20120810
